FAERS Safety Report 20674659 (Version 1)
Quarter: 2022Q2

REPORT INFORMATION
  Report Type: Report from Study
  Country: AU (occurrence: AU)
  Receive Date: 20220405
  Receipt Date: 20220405
  Transmission Date: 20220720
  Serious: Yes (Other)
  Sender: FDA-Public Use
  Company Number: AU-JNJFOC-20210143628

PATIENT
  Sex: Female

DRUGS (1)
  1. SIMPONI [Suspect]
     Active Substance: GOLIMUMAB
     Indication: Colitis ulcerative
     Dosage: STRENGTH: 100MG 1.0 ML?QUANTITY: 6
     Route: 058
     Dates: end: 20220330

REACTIONS (3)
  - Rectal cancer [Unknown]
  - Off label use [Unknown]
  - Product use issue [Unknown]
